FAERS Safety Report 7081227-X (Version None)
Quarter: 2010Q4

REPORT INFORMATION
  Report Type: 
  Country: None (occurrence: None)
  Receive Date: 20101102
  Receipt Date: 20101102
  Transmission Date: 20110411
  Serious: Yes (Hospitalization)
  Sender: FDA-Public Use
  Company Number: None

PATIENT
  Age: 54 Year
  Sex: Female
  Weight: 58 kg

DRUGS (6)
  1. WARFARIN SODIUM [Suspect]
     Indication: ATRIAL FIBRILLATION
     Dosage: 6 MG DAILY PO UNKNOWN PRIOR TO ADMIT
     Route: 048
  2. ENOXAPARIN SODIUM [Suspect]
     Indication: DEEP VEIN THROMBOSIS
     Dosage: 80 MG DAILY SQ UNKNOWN PRIOR TO ADMIT
     Route: 058
  3. DIVALPROEX SODIUM [Concomitant]
  4. FUROSEMIDE [Concomitant]
  5. METFORMIN HCL [Concomitant]
  6. POTASSIUM CHLORIDE [Concomitant]

REACTIONS (5)
  - ANAEMIA [None]
  - ASTHENIA [None]
  - HAEMORRHAGE [None]
  - INTRA-ABDOMINAL HAEMATOMA [None]
  - PELVIC HAEMATOMA [None]
